FAERS Safety Report 15361489 (Version 1)
Quarter: 2018Q3

REPORT INFORMATION
  Report Type: Spontaneous
  Country: US (occurrence: US)
  Receive Date: 20180907
  Receipt Date: 20180907
  Transmission Date: 20181010
  Serious: No
  Sender: FDA-Public Use
  Company Number: US-ENDO PHARMACEUTICALS INC-2018-016453

PATIENT
  Sex: Female

DRUGS (1)
  1. OXYCODONE/ACETAMINOPHEN TABLETS [Suspect]
     Active Substance: ACETAMINOPHEN\OXYCODONE HYDROCHLORIDE
     Indication: BACK PAIN
     Dosage: 0.5 DF, PRN
     Route: 065

REACTIONS (5)
  - Nausea [Recovered/Resolved]
  - Dizziness [Recovered/Resolved]
  - Malaise [Recovered/Resolved]
  - Wrong technique in product usage process [Recovered/Resolved]
  - Drug ineffective [Recovered/Resolved]
